FAERS Safety Report 6242120-5 (Version None)
Quarter: 2009Q2

REPORT INFORMATION
  Report Type: 
  Country: None (occurrence: None)
  Receive Date: 20090624
  Receipt Date: 20071017
  Transmission Date: 20091009
  Serious: Yes (Other)
  Sender: FDA-Public Use
  Company Number: US-ASTRAZENECA-2007UW08949

PATIENT
  Age: 35 Year
  Sex: Male
  Weight: 83.2 kg

DRUGS (16)
  1. SEROQUEL [Suspect]
     Route: 048
     Dates: start: 19950101
  2. SEROQUEL [Suspect]
     Dosage: 25 MG - 600 MG
     Route: 048
     Dates: start: 20020414
  3. ABILIFY [Concomitant]
  4. CLOZARIL [Concomitant]
     Dates: start: 20040922, end: 20050316
  5. EFFEXOR XR [Concomitant]
     Dosage: 75 - 300 MG
     Dates: start: 19990306
  6. CRESTOR [Concomitant]
     Dosage: 10-40 MG
     Dates: start: 20041019
  7. INSULIN NPH [Concomitant]
     Dosage: 70/30 AT 100 UNITS TWICE DAILY
     Dates: start: 20020320
  8. PROTONIX [Concomitant]
     Route: 048
     Dates: start: 20040914
  9. TEGRETOL [Concomitant]
     Dates: start: 19990306
  10. ZYPREXA [Concomitant]
     Dates: start: 19990306
  11. AVAPRO [Concomitant]
     Dates: start: 20040914
  12. LITHIUM CARBONATE [Concomitant]
     Dates: start: 20040922, end: 20050316
  13. CLOZAPINE [Concomitant]
     Dosage: 25-100 MG
     Dates: start: 20041001
  14. TOPOROL XL [Concomitant]
     Dosage: 25-150 MG
     Dates: start: 20041019
  15. GEMFIBROZIL [Concomitant]
     Dates: start: 20041019
  16. WELLBUTRIN [Concomitant]
     Dates: start: 20041026

REACTIONS (5)
  - DIABETES MELLITUS [None]
  - DIABETIC NEUROPATHY [None]
  - INSULIN-REQUIRING TYPE 2 DIABETES MELLITUS [None]
  - TYPE 1 DIABETES MELLITUS [None]
  - TYPE 2 DIABETES MELLITUS [None]
